FAERS Safety Report 15091400 (Version 2)
Quarter: 2018Q3

REPORT INFORMATION
  Report Type: Report from Study
  Country: CZ (occurrence: CZ)
  Receive Date: 20180629
  Receipt Date: 20180706
  Transmission Date: 20181010
  Serious: Yes (Hospitalization)
  Sender: FDA-Public Use
  Company Number: CZ-PFIZER INC-2018260415

PATIENT
  Age: 12 Year
  Sex: Female

DRUGS (2)
  1. DRUG, UNSPECIFIED [Suspect]
     Active Substance: UNSPECIFIED INGREDIENT
     Dosage: UNK NO DOSE GIVEN
  2. METHOTREXATE SODIUM. [Concomitant]
     Active Substance: METHOTREXATE SODIUM
     Dosage: 12 MG, UNK
     Dates: start: 20180620

REACTIONS (1)
  - Oesophageal haemorrhage [Recovered/Resolved]

NARRATIVE: CASE EVENT DATE: 20180622
